FAERS Safety Report 5936765-7 (Version None)
Quarter: 2008Q4

REPORT INFORMATION
  Report Type: 
  Country: None (occurrence: None)
  Receive Date: 20081027
  Receipt Date: 20081013
  Transmission Date: 20090506
  Serious: Yes (Hospitalization)
  Sender: FDA-Public Use
  Company Number: GAM-080-08-AU

PATIENT
  Age: 68 Year
  Sex: Female

DRUGS (5)
  1. OCTAGAN 5% (HUMAN NORMAL IMMUNOGLOBULIN FOR INTRAVENOUS ADMINISTRATION [Suspect]
     Indication: HYPOGAMMAGLOBULINAEMIA
     Dosage: 25G, I.V.
     Route: 042
     Dates: start: 20081004, end: 20081004
  2. REVLIMID [Suspect]
     Indication: MULTIPLE MYELOMA
     Dosage: 25 MG, P.O.
     Route: 048
     Dates: start: 20080320, end: 20080904
  3. ASPIRIN [Concomitant]
  4. DEXAMETHASONE TAB [Concomitant]
  5. ACETAMINOPHEN [Concomitant]

REACTIONS (3)
  - FEBRILE NEUTROPENIA [None]
  - INFUSION RELATED REACTION [None]
  - URINARY TRACT INFECTION ENTEROCOCCAL [None]
